FAERS Safety Report 16116568 (Version 1)
Quarter: 2019Q1

REPORT INFORMATION
  Report Type: Spontaneous
  Country: NL (occurrence: NL)
  Receive Date: 20190326
  Receipt Date: 20190326
  Transmission Date: 20190418
  Serious: Yes (Hospitalization)
  Sender: FDA-Public Use
  Company Number: NL-AUROBINDO-AUR-APL-2019-014874

PATIENT

DRUGS (2)
  1. VENLAFAXINE PROLONGED RELEASED CAPSULES, HARD 75MG [Suspect]
     Active Substance: VENLAFAXINE HYDROCHLORIDE
     Indication: DEPRESSION
     Dosage: 1X PER DAG 1 CAPSULE
     Route: 048
     Dates: start: 20180416, end: 20180417
  2. ZOLPIDEMTARTRAAT [Concomitant]
     Active Substance: ZOLPIDEM TARTRATE
     Indication: PRODUCT USED FOR UNKNOWN INDICATION
     Dosage: UNK
     Route: 065

REACTIONS (6)
  - Paraesthesia [Recovered/Resolved]
  - Tongue discolouration [Recovering/Resolving]
  - Oral mucosal blistering [Recovering/Resolving]
  - Presyncope [Recovered/Resolved]
  - Abdominal pain [Recovering/Resolving]
  - Skin odour abnormal [Recovered/Resolved]

NARRATIVE: CASE EVENT DATE: 20180416
